FAERS Safety Report 5846268-6 (Version None)
Quarter: 2008Q3

REPORT INFORMATION
  Report Type: 
  Country: None (occurrence: None)
  Receive Date: 20080813
  Receipt Date: 20080729
  Transmission Date: 20090109
  Serious: Yes (Other)
  Sender: FDA-Public Use
  Company Number: CIP08001299

PATIENT
  Age: 36 Year
  Sex: Female

DRUGS (20)
  1. ACTONEL [Suspect]
     Indication: OSTEOPOROSIS
     Dosage: 17.5 MG, 1 /WEEK, ORAL
     Route: 048
     Dates: start: 20070809, end: 20070912
  2. PREDONINE           /00016201/ (PREDNISOLONE) [Concomitant]
  3. WARFARIN POTASSIUM     (WARFARIN POTASSIUM) [Concomitant]
  4. ASPIRIN [Concomitant]
  5. ANPLAG        (SARPOGRELATE HYDROCHLORIDE) [Concomitant]
  6. RABEPRAZOLE SODIUM [Concomitant]
  7. JUVELA N (TOCOPHERYL NICOTINATE) [Concomitant]
  8. FERROMIA          /00023520/ (FERROUS SODIUM CITRATE) [Concomitant]
  9. PRIMPERAN         /00041901/ (METOCLOPRAMIDE) [Concomitant]
  10. SELBEX (TEPRENONE) [Concomitant]
  11. PURSENNID     /00571901/ (SENNOSIDE A+B) [Concomitant]
  12. HYALEIN MINI     (HYALURONIC ACID) [Concomitant]
  13. FIBLAST    (TRAFERMIN) [Concomitant]
  14. MOHRUS (KETOPROFEN) [Concomitant]
  15. SELTOUCH (FELBINAC) [Concomitant]
  16. LAXOBERON (SODIUM PICOSULFATE) [Concomitant]
  17. LEVOFLOXACIN [Concomitant]
  18. HIRUDOID /00723701/ (HEPARINOID) [Concomitant]
  19. LOXONIN /00890702/ (LOXOPROFEN SODIUM) [Concomitant]
  20. PROSTANDIN            /00501502/ (ALPROSTADIL ALFADEX) [Concomitant]

REACTIONS (2)
  - CONDITION AGGRAVATED [None]
  - SKIN ULCER [None]
